FAERS Safety Report 7510036-X (Version None)
Quarter: 2011Q2

REPORT INFORMATION
  Report Type: 
  Country: None (occurrence: None)
  Receive Date: 20110527
  Receipt Date: 20110518
  Transmission Date: 20111010
  Serious: Yes (Other)
  Sender: FDA-Public Use
  Company Number: US-ROCHE-697983

PATIENT
  Sex: Female
  Weight: 68 kg

DRUGS (10)
  1. NAPROXEN [Concomitant]
  2. ZITHROMAX [Concomitant]
  3. SOTRET [Suspect]
     Indication: ACNE
     Route: 065
     Dates: start: 20041201, end: 20050301
  4. CIPROFLOXACIN [Concomitant]
     Indication: GASTRIC DISORDER
  5. TETRACYCLINE [Concomitant]
     Indication: ACNE
  6. ACCUTANE [Suspect]
     Indication: ACNE
     Route: 065
     Dates: start: 20040901
  7. DOXYCYCLINE [Concomitant]
     Indication: ACNE
  8. AMNESTEEM [Suspect]
     Indication: ACNE
     Route: 065
     Dates: start: 20040927, end: 20041101
  9. ALLEGRA D 24 HOUR [Concomitant]
  10. METRONIDAZOLE [Concomitant]

REACTIONS (4)
  - LIP DRY [None]
  - COLITIS ULCERATIVE [None]
  - ANXIETY [None]
  - INFLAMMATORY BOWEL DISEASE [None]
